FAERS Safety Report 24097881 (Version 1)
Quarter: 2024Q3

REPORT INFORMATION
  Report Type: Spontaneous
  Country: US (occurrence: US)
  Receive Date: 20240716
  Receipt Date: 20240716
  Transmission Date: 20241017
  Serious: Yes (Other)
  Sender: PFIZER
  Company Number: US-PFIZER INC-202400213811

PATIENT
  Age: 52 Year
  Sex: Female

DRUGS (1)
  1. XELJANZ XR [Suspect]
     Active Substance: TOFACITINIB CITRATE
     Dosage: 11 MG, DAILY (1 TABLET PO(PER ORAL) DAILY)
     Route: 048

REACTIONS (8)
  - Polyarthritis [Unknown]
  - Carpal tunnel syndrome [Unknown]
  - Arthralgia [Unknown]
  - Musculoskeletal stiffness [Unknown]
  - Contusion [Unknown]
  - Hypoaesthesia [Unknown]
  - Back pain [Unknown]
  - Plantar fasciitis [Unknown]
